FAERS Safety Report 17049951 (Version 2)
Quarter: 2020Q4

REPORT INFORMATION
  Report Type: Spontaneous
  Country: US (occurrence: US)
  Receive Date: 20191119
  Receipt Date: 20201104
  Transmission Date: 20210113
  Serious: Yes (Other)
  Sender: FDA-Public Use
  Company Number: US-SHIRE-US201938438

PATIENT
  Sex: Male
  Weight: 76.19 kg

DRUGS (24)
  1. GAMMAGARD LIQUID [Suspect]
     Active Substance: HUMAN IMMUNOGLOBULIN G
     Indication: POLYNEUROPATHY
     Dosage: 20 GRAM, 1X/2WKS
     Route: 042
     Dates: start: 20130821
  2. CEREFOLIN NAC [ACETYLCYSTEINE;CALCIUM LEVOMEFOLATE;MECOBALAMIN] [Concomitant]
     Active Substance: ACETYLCYSTEINE\LEVOMEFOLATE CALCIUM\METHYLCOBALAMIN
  3. FENOFIBRATE. [Concomitant]
     Active Substance: FENOFIBRATE
  4. NIASPAN [Concomitant]
     Active Substance: NIACIN
  5. CARVEDILOL. [Concomitant]
     Active Substance: CARVEDILOL
  6. ALPRAZOLAM. [Concomitant]
     Active Substance: ALPRAZOLAM
  7. FENTANYL. [Concomitant]
     Active Substance: FENTANYL
  8. DIPHENHYDRAMINE. [Concomitant]
     Active Substance: DIPHENHYDRAMINE
  9. NORMAL SALINE [Concomitant]
     Active Substance: SODIUM CHLORIDE
  10. NUVIGIL [Concomitant]
     Active Substance: ARMODAFINIL
  11. LOVAZA [Concomitant]
     Active Substance: OMEGA-3-ACID ETHYL ESTERS
  12. TRAZODONE [Concomitant]
     Active Substance: TRAZODONE HYDROCHLORIDE
  13. ACETAZOLAMIDE. [Concomitant]
     Active Substance: ACETAZOLAMIDE
  14. HEPARIN [Concomitant]
     Active Substance: HEPARIN SODIUM
  15. LORAZEPAM. [Concomitant]
     Active Substance: LORAZEPAM
  16. LEVOTHYROXINE. [Concomitant]
     Active Substance: LEVOTHYROXINE
  17. EPINEPHRINE. [Concomitant]
     Active Substance: EPINEPHRINE
  18. SODIUM CHLORIDE. [Concomitant]
     Active Substance: SODIUM CHLORIDE
  19. NASONEX [Concomitant]
     Active Substance: MOMETASONE FUROATE
  20. DESLORATADINE. [Concomitant]
     Active Substance: DESLORATADINE
  21. VIIBRYD [Concomitant]
     Active Substance: VILAZODONE HYDROCHLORIDE
  22. KLOR-CON [Concomitant]
     Active Substance: POTASSIUM CHLORIDE
  23. VICODIN [Concomitant]
     Active Substance: ACETAMINOPHEN\HYDROCODONE BITARTRATE
  24. NEXIUM I.V. [Concomitant]
     Active Substance: ESOMEPRAZOLE SODIUM

REACTIONS (2)
  - Malaise [Unknown]
  - Faecaloma [Unknown]
